FAERS Safety Report 9107284 (Version 3)
Quarter: 2013Q2

REPORT INFORMATION
  Report Type: Report from Study
  Country: DE (occurrence: DE)
  Receive Date: 20130221
  Receipt Date: 20130617
  Transmission Date: 20140414
  Serious: Yes (Hospitalization, Other)
  Sender: FDA-Public Use
  Company Number: DE-BRISTOL-MYERS SQUIBB COMPANY-15915937

PATIENT
  Age: 64 Year
  Sex: Female
  Weight: 59 kg

DRUGS (18)
  1. CETUXIMAB [Suspect]
     Indication: NON-SMALL CELL LUNG CANCER
     Dosage: 17TH INFUSION.CETUXIMAB 5MG/ML
     Route: 042
     Dates: start: 20110308, end: 20110614
  2. CISPLATIN FOR INJ [Suspect]
     Indication: NON-SMALL CELL LUNG CANCER
     Dosage: 5TH INF
     Route: 042
     Dates: start: 20110308, end: 20110531
  3. CILENGITIDE [Suspect]
     Indication: NON-SMALL CELL LUNG CANCER
     Dosage: 29TH INFUSION.MOST RECENT DOSE ON 17JUN2011
     Route: 042
     Dates: start: 20110308, end: 20110617
  4. GEMCITABINE [Suspect]
     Indication: NON-SMALL CELL LUNG CANCER
     Dosage: DAY 1 AND DAY 8 OF EACH 3 WEEK CYCLE.MOST RECENT DOSE ON 7JUN2011.
     Route: 042
     Dates: start: 20110308, end: 20110607
  5. CO-DIOVAN [Concomitant]
     Dosage: 1 DF=80/12.5 MG
  6. BISOPROLOL [Concomitant]
     Dosage: 1/2-0-0
  7. PANTOZOL [Concomitant]
  8. MAGNESIUM [Concomitant]
     Dosage: 1 DF-4 UNITS NOS
  9. MULTIBIONTA [Concomitant]
     Dosage: MULTIBIONTA FORTE CAPS
  10. SPIRIVA [Concomitant]
  11. FORTECORTIN [Concomitant]
  12. FORTECORTIN [Concomitant]
  13. VITAMIN B12 [Concomitant]
     Route: 030
     Dates: start: 20110622
  14. BISPHOSPHONATES [Concomitant]
     Dates: end: 20110531
  15. LEXOTANIL [Concomitant]
  16. FOLINIC ACID [Concomitant]
  17. CLEXANE [Concomitant]
  18. FERRUM [Concomitant]

REACTIONS (1)
  - Embolism [Recovered/Resolved]
